FAERS Safety Report 4295239-2 (Version None)
Quarter: 2004Q1

REPORT INFORMATION
  Report Type: 
  Country: None (occurrence: None)
  Receive Date: 20040216
  Receipt Date: 20030424
  Transmission Date: 20041129
  Serious: No
  Sender: FDA-Public Use
  Company Number: US-GLAXOSMITHKLINE-A0406076A

PATIENT
  Age: 11 Year
  Sex: Female

DRUGS (4)
  1. LAMICTAL [Suspect]
     Dosage: 40MG TWICE PER DAY
     Route: 048
     Dates: start: 20021201
  2. PROGRAF [Concomitant]
  3. DEPAKOTE [Concomitant]
  4. NEURONTIN [Concomitant]

REACTIONS (2)
  - ALOPECIA [None]
  - TREMOR [None]
